FAERS Safety Report 24861105 (Version 1)
Quarter: 2025Q1

REPORT INFORMATION
  Report Type: Spontaneous
  Country: CA (occurrence: CA)
  Receive Date: 20250120
  Receipt Date: 20250120
  Transmission Date: 20250408
  Serious: Yes (Other)
  Sender: APOTEX
  Company Number: CA-APOTEX-2025AP001098

PATIENT
  Age: 39 Year
  Sex: Female

DRUGS (2)
  1. ACETAMINOPHEN [Suspect]
     Active Substance: ACETAMINOPHEN
     Indication: Product used for unknown indication
     Dosage: 10 DOSAGE FORM, QD
     Route: 045
     Dates: start: 202209
  2. ACETAMINOPHEN [Suspect]
     Active Substance: ACETAMINOPHEN
     Dosage: 1-4 DOSAGE FORM, QD
     Route: 045

REACTIONS (14)
  - Drug abuse [Recovered/Resolved]
  - Nasal necrosis [Unknown]
  - Nasal inflammation [Unknown]
  - Nasal septum perforation [Unknown]
  - Nasal crusting [Unknown]
  - Rhinorrhoea [Unknown]
  - Nasal congestion [Unknown]
  - Odynophagia [Unknown]
  - Anosmia [Unknown]
  - Oropharyngeal discomfort [Unknown]
  - Sinus pain [Unknown]
  - Dysphonia [Unknown]
  - Nasal discomfort [Unknown]
  - Rhinalgia [Unknown]
